FAERS Safety Report 16705536 (Version 1)
Quarter: 2019Q3

REPORT INFORMATION
  Report Type: Report from Study
  Country: US (occurrence: US)
  Receive Date: 20190815
  Receipt Date: 20190815
  Transmission Date: 20191004
  Serious: Yes (Other)
  Sender: FDA-Public Use
  Company Number: US-ROCHE-2280507

PATIENT
  Age: 72 Year
  Sex: Male

DRUGS (2)
  1. OCREVUS [Suspect]
     Active Substance: OCRELIZUMAB
     Indication: RELAPSING-REMITTING MULTIPLE SCLEROSIS
     Dosage: ONGOING-UNKNOWN?13/FEB/2019, 27/FEB/2019 AND 05/MAR/2019 RECEIVED OCRELIZUMAB TREATMENT
     Route: 065
     Dates: start: 20190202
  2. OCREVUS [Suspect]
     Active Substance: OCRELIZUMAB
     Indication: RELAPSING MULTIPLE SCLEROSIS

REACTIONS (7)
  - Pneumonia [Recovered/Resolved]
  - Dizziness [Recovered/Resolved]
  - Immunosuppression [Unknown]
  - Asthenia [Unknown]
  - Fall [Unknown]
  - Immunodeficiency [Unknown]
  - Loss of consciousness [Unknown]

NARRATIVE: CASE EVENT DATE: 20190213
